FAERS Safety Report 9023602 (Version 2)
Quarter: 2013Q2

REPORT INFORMATION
  Report Type: Spontaneous
  Country: TR (occurrence: TR)
  Receive Date: 20130121
  Receipt Date: 20130503
  Transmission Date: 20140414
  Serious: Yes (Hospitalization)
  Sender: FDA-Public Use
  Company Number: PHHY2013TR004079

PATIENT
  Age: 25 Year
  Sex: Male

DRUGS (3)
  1. TACROLIMUS [Suspect]
     Indication: RENAL TRANSPLANT
     Dosage: 2 MG, BID
  2. MYCOPHENOLATE MOFETIL [Suspect]
     Indication: RENAL TRANSPLANT
     Dosage: 2 DF, BID
  3. PREDNISOLONE [Suspect]
     Dosage: 5 MG, QD

REACTIONS (12)
  - Hypomania [Recovered/Resolved]
  - Psychomotor hyperactivity [Recovered/Resolved]
  - Anxiety [Recovered/Resolved]
  - Logorrhoea [Recovered/Resolved]
  - Cyclothymic disorder [Recovered/Resolved]
  - Inappropriate affect [Recovered/Resolved]
  - Depression [Recovered/Resolved]
  - Insomnia [Recovered/Resolved]
  - Discomfort [Recovered/Resolved]
  - Depressed mood [Recovered/Resolved]
  - Negative thoughts [Recovered/Resolved]
  - Suicidal ideation [Recovered/Resolved]
